FAERS Safety Report 11601525 (Version 1)
Quarter: 2015Q4

REPORT INFORMATION
  Report Type: Spontaneous
  Country: US (occurrence: US)
  Receive Date: 20151006
  Receipt Date: 20151006
  Transmission Date: 20160304
  Serious: No
  Sender: FDA-Public Use
  Company Number: US-AMGEN-USASP2015043806

PATIENT
  Age: 80 Year
  Sex: Female

DRUGS (3)
  1. PROLIA [Suspect]
     Active Substance: DENOSUMAB
     Indication: BONE DISORDER
     Dosage: UNK UNK, UNK
     Route: 065
     Dates: start: 20141028
  2. CALCIUM [Concomitant]
     Active Substance: CALCIUM
     Dosage: 1200 MG, UNK
  3. VITAMINS                           /00067501/ [Concomitant]
     Active Substance: VITAMINS

REACTIONS (5)
  - Spondylitis [Unknown]
  - Back pain [Unknown]
  - Cyst [Not Recovered/Not Resolved]
  - Arthritis [Unknown]
  - Bone cyst [Not Recovered/Not Resolved]

NARRATIVE: CASE EVENT DATE: 2014
